FAERS Safety Report 17058065 (Version 1)
Quarter: 2019Q4

REPORT INFORMATION
  Report Type: Report from Study
  Country: US (occurrence: US)
  Receive Date: 20191121
  Receipt Date: 20191121
  Transmission Date: 20200122
  Serious: Yes (Hospitalization, Other)
  Sender: FDA-Public Use
  Company Number: US-ROCHE-1608309

PATIENT
  Age: 62 Year
  Sex: Male
  Weight: 72.6 kg

DRUGS (7)
  1. NORVASC [Concomitant]
     Active Substance: AMLODIPINE BESYLATE
  2. TEMOZOLOMIDE. [Suspect]
     Active Substance: TEMOZOLOMIDE
     Indication: GLIOBLASTOMA
     Dosage: 100 MG DAILY?MOST RECENT DOSE: 14/FEB/2016
     Route: 048
     Dates: start: 20160113
  3. KEPPRA [Concomitant]
     Active Substance: LEVETIRACETAM
  4. PRILOSEC [Concomitant]
     Active Substance: OMEPRAZOLE MAGNESIUM
  5. LISINOPRIL. [Concomitant]
     Active Substance: LISINOPRIL
  6. BEVACIZUMAB. [Suspect]
     Active Substance: BEVACIZUMAB
     Indication: GLIOBLASTOMA
     Dosage: 800 MG DOSE?MOST RECENT DOSE: 31/DEC/2015
     Route: 042
     Dates: start: 20140103
  7. ETOPOSIDE. [Suspect]
     Active Substance: ETOPOSIDE
     Indication: GLIOBLASTOMA
     Dosage: MOST RECENT DOSE: 11/APR/2016
     Route: 048
     Dates: start: 20160323

REACTIONS (12)
  - Dehydration [Unknown]
  - Muscular weakness [Unknown]
  - Hypocalcaemia [Unknown]
  - Proteinuria [Unknown]
  - Febrile neutropenia [Unknown]
  - Hypertension [Unknown]
  - Fatigue [Unknown]
  - Disease progression [Unknown]
  - Fall [Unknown]
  - Neutrophil count decreased [Unknown]
  - Pyrexia [Unknown]
  - Anaemia [Not Recovered/Not Resolved]

NARRATIVE: CASE EVENT DATE: 20150623
